FAERS Safety Report 12721306 (Version 1)
Quarter: 2016Q3

REPORT INFORMATION
  Report Type: Spontaneous
  Country: GB (occurrence: GB)
  Receive Date: 20160907
  Receipt Date: 20160907
  Transmission Date: 20161109
  Serious: Yes (Other)
  Sender: FDA-Public Use
  Company Number: GB-TEVA-688083ACC

PATIENT
  Age: 71 Year
  Sex: Male
  Weight: 97 kg

DRUGS (7)
  1. TRAMADOL. [Concomitant]
     Active Substance: TRAMADOL
  2. TRANSTEC [Concomitant]
     Active Substance: BUPRENORPHINE
  3. LEVOTHYROXINE. [Concomitant]
     Active Substance: LEVOTHYROXINE
  4. TYLEX [Concomitant]
     Active Substance: ACETAMINOPHEN\CODEINE PHOSPHATE
     Dosage: 30/500 MG
  5. NAPROXEN. [Concomitant]
     Active Substance: NAPROXEN
  6. AMLODIPINE [Concomitant]
     Active Substance: AMLODIPINE BESYLATE
  7. SIMVASTATIN. [Suspect]
     Active Substance: SIMVASTATIN
     Route: 048
     Dates: start: 20091106, end: 20110329

REACTIONS (4)
  - Sleep terror [Recovered/Resolved]
  - Myalgia [Recovered/Resolved]
  - Hyperhidrosis [Unknown]
  - Palpitations [Unknown]

NARRATIVE: CASE EVENT DATE: 20100306
